APPROVED DRUG PRODUCT: GAMOPHEN
Active Ingredient: HEXACHLOROPHENE
Strength: 2%
Dosage Form/Route: SOAP;TOPICAL
Application: N006270 | Product #003
Applicant: ARBROOK INC
Approved: Approved Prior to Jan 1, 1982 | RLD: No | RS: No | Type: DISCN